FAERS Safety Report 16696003 (Version 1)
Quarter: 2019Q3

REPORT INFORMATION
  Report Type: Report from Study
  Country: US (occurrence: US)
  Receive Date: 20190813
  Receipt Date: 20190813
  Transmission Date: 20191004
  Serious: Yes (Other)
  Sender: FDA-Public Use
  Company Number: US-ROCHE-2374551

PATIENT

DRUGS (6)
  1. MYCOPHENOLATE MOFETIL. [Suspect]
     Active Substance: MYCOPHENOLATE MOFETIL
     Indication: PROPHYLAXIS AGAINST GRAFT VERSUS HOST DISEASE
     Dosage: FROM DAY 0 UNTIL DAY 30?THEN TWICE DAILY UNTIL DAY 150, AND (IN THE ABSENCE OF GVHD) TAPERED OFF BY
     Route: 048
  2. CYCLOSPORINE. [Suspect]
     Active Substance: CYCLOSPORINE
     Dosage: 350 NG/ML FOR THE FIRST 28 DAYS AND THEREAFTER AT 120-300 NG/ML UNTIL TAPER.
     Route: 065
  3. FLUDARABINE [Concomitant]
     Active Substance: FLUDARABINE PHOSPHATE
     Route: 065
  4. SIROLIMUS. [Suspect]
     Active Substance: SIROLIMUS
     Indication: PROPHYLAXIS AGAINST GRAFT VERSUS HOST DISEASE
     Dosage: 3-12 NG/ML THROUGH TO DAY 150 AND TAPERED OFF BY DAY 180.
     Route: 048
  5. CYCLOSPORINE. [Suspect]
     Active Substance: CYCLOSPORINE
     Indication: PROPHYLAXIS AGAINST GRAFT VERSUS HOST DISEASE
     Dosage: DAY 96 THROUGH TO DAY 150
     Route: 048
  6. CYCLOSPORINE. [Suspect]
     Active Substance: CYCLOSPORINE
     Dosage: 400 NG/ML FOR THE FIRST 28 DAYS AND THEREAFTER BETWEEN 150-350 NG/ML
     Route: 065

REACTIONS (10)
  - Lung disorder [Unknown]
  - Lymphatic disorder [Unknown]
  - Renal disorder [Unknown]
  - Cytomegalovirus infection [Unknown]
  - Liver disorder [Unknown]
  - Nervous system disorder [Unknown]
  - Cardiac disorder [Unknown]
  - Hypertriglyceridaemia [Unknown]
  - Urinary tract disorder [Unknown]
  - Gastrointestinal disorder [Unknown]
